FAERS Safety Report 19972658 (Version 1)
Quarter: 2021Q4

REPORT INFORMATION
  Report Type: Spontaneous
  Country: US (occurrence: US)
  Receive Date: 20211019
  Receipt Date: 20211019
  Transmission Date: 20220304
  Serious: Yes (Other)
  Sender: FDA-Public Use
  Company Number: None

PATIENT
  Age: 30 Year
  Sex: Female
  Weight: 104 kg

DRUGS (4)
  1. CASIRIVIMAB [Suspect]
     Active Substance: CASIRIVIMAB
     Indication: COVID-19
     Dosage: ?          OTHER FREQUENCY:ONCE;
     Route: 041
     Dates: start: 20211019, end: 20211019
  2. CASIRIVIMAB [Suspect]
     Active Substance: CASIRIVIMAB
     Indication: Pregnancy
  3. IMDEVIMAB [Suspect]
     Active Substance: IMDEVIMAB
     Indication: COVID-19
     Dosage: ?          OTHER FREQUENCY:ONCE;
     Route: 041
     Dates: start: 20211019, end: 20211019
  4. IMDEVIMAB [Suspect]
     Active Substance: IMDEVIMAB
     Indication: Pregnancy

REACTIONS (5)
  - Flushing [None]
  - Pharyngeal swelling [None]
  - Infusion related reaction [None]
  - Dyspnoea [None]
  - Exposure during pregnancy [None]

NARRATIVE: CASE EVENT DATE: 20211019
